FAERS Safety Report 4499257-0 (Version None)
Quarter: 2004Q4

REPORT INFORMATION
  Report Type: 
  Country: None (occurrence: None)
  Receive Date: 20041111
  Receipt Date: 20041102
  Transmission Date: 20050328
  Serious: Yes (Death)
  Sender: FDA-Public Use
  Company Number: US-JNJFOC-20040908823

PATIENT
  Age: 55 Year
  Sex: Male

DRUGS (8)
  1. ULTRAM [Suspect]
     Indication: DRUG USE FOR UNKNOWN INDICATION
     Route: 049
  2. AMITRIPTYLINE [Suspect]
     Indication: DRUG USE FOR UNKNOWN INDICATION
     Route: 049
  3. METOPROLOL [Suspect]
     Indication: DRUG USE FOR UNKNOWN INDICATION
     Route: 049
  4. DIGOXIN [Suspect]
     Indication: DRUG USE FOR UNKNOWN INDICATION
  5. FUROSEMIDE [Suspect]
     Indication: DRUG USE FOR UNKNOWN INDICATION
  6. LISINOPRIL [Suspect]
     Indication: DRUG USE FOR UNKNOWN INDICATION
  7. ISOSORBIDE [Suspect]
     Indication: DRUG USE FOR UNKNOWN INDICATION
  8. ALPRAZOLAM [Suspect]
     Indication: DRUG USE FOR UNKNOWN INDICATION

REACTIONS (11)
  - BLOOD CREATINE PHOSPHOKINASE INCREASED [None]
  - BRADYCARDIA [None]
  - DELIRIUM [None]
  - ELECTROMECHANICAL DISSOCIATION [None]
  - HYPOTENSION [None]
  - MEDICATION ERROR [None]
  - MULTIPLE DRUG OVERDOSE [None]
  - THERAPY NON-RESPONDER [None]
  - TORSADE DE POINTES [None]
  - TREATMENT NONCOMPLIANCE [None]
  - VENTRICULAR TACHYCARDIA [None]
